FAERS Safety Report 10974122 (Version 1)
Quarter: 2015Q2

REPORT INFORMATION
  Report Type: Spontaneous
  Country: GB (occurrence: GB)
  Receive Date: 20150401
  Receipt Date: 20150401
  Transmission Date: 20150821
  Serious: Yes (Death, Hospitalization, Other)
  Sender: FDA-Public Use
  Company Number: GB-CIPLA LTD.-2015GB02542

PATIENT

DRUGS (4)
  1. AVASTIN [Suspect]
     Active Substance: BEVACIZUMAB
     Indication: ADENOCARCINOMA GASTRIC
     Dosage: LAST DOSE PRIOR TO SAE: 11 JUNE 2010, LAST DOSE PRIOR TO ABDOMINAL PAIN: 02/NOV/2009
     Route: 042
  2. CISPLATIN. [Suspect]
     Active Substance: CISPLATIN
     Indication: ADENOCARCINOMA GASTRIC
     Dosage: LAST DOSE ON 02/NOV/2009
     Route: 042
     Dates: start: 20090911
  3. XELODA [Suspect]
     Active Substance: CAPECITABINE
     Indication: ADENOCARCINOMA GASTRIC
     Dosage: ACTUAL DOSE 2.5 (UNIT NOT SPECIFIED) DOSE: 35000. LAST DOSE PRIOR TO SAE: 02-NOV-2009
     Route: 048
  4. EPIRUBICIN [Suspect]
     Active Substance: EPIRUBICIN
     Indication: ADENOCARCINOMA GASTRIC
     Dosage: LAST DOSE ON 02/NOV/2009
     Route: 042
     Dates: start: 20090911

REACTIONS (4)
  - Retching [Unknown]
  - Abdominal pain [Fatal]
  - Nausea [Unknown]
  - Abdominal adhesions [Unknown]

NARRATIVE: CASE EVENT DATE: 20100413
